FAERS Safety Report 9670266 (Version 2)
Quarter: 2013Q4

REPORT INFORMATION
  Report Type: Report from Study
  Country: US (occurrence: US)
  Receive Date: 20131105
  Receipt Date: 20131202
  Transmission Date: 20140711
  Serious: Yes (Hospitalization, Other)
  Sender: FDA-Public Use
  Company Number: US-EXELIXIS-XL18413003579

PATIENT
  Age: 67 Year
  Sex: Male
  Weight: 92.9 kg

DRUGS (21)
  1. XL184 [Suspect]
     Indication: PROSTATE CANCER
     Dosage: 60 MG, QD
     Route: 048
     Dates: start: 20131010, end: 20131027
  2. XL184 [Suspect]
     Dosage: 40 MG, QD
     Route: 048
     Dates: start: 20131120
  3. XL184 [Suspect]
     Indication: PROSTATE CANCER
     Dosage: 12 MG/M2, Q3WEEKS
     Route: 042
     Dates: start: 20131010, end: 20131010
  4. XL184 [Suspect]
     Dosage: 12 MG/M2, Q3WEEKS
     Route: 042
     Dates: start: 20131120
  5. XL184 [Suspect]
     Indication: PROSTATE CANCER
     Dosage: 5 MG, BID
     Route: 048
     Dates: start: 20131010, end: 20131028
  6. XL184 [Suspect]
     Dosage: 5 MG, BID
     Route: 048
     Dates: start: 20131120
  7. FENTANYL [Concomitant]
  8. SUCRALFATE [Concomitant]
  9. NEURONTIN [Concomitant]
  10. CARDURA [Concomitant]
  11. CLOTRIMAZOLE AND BETAMETHASONE DIPROPIONATE [Concomitant]
  12. ALEVE [Concomitant]
  13. ACETAMINOPHEN W/HYDROCODONE [Concomitant]
  14. BACTRIM [Concomitant]
  15. MIRALAX [Concomitant]
  16. TUMS [Concomitant]
  17. LUPRON DEPOT [Concomitant]
  18. MAGNESIUM OXIDE [Concomitant]
  19. CALCIUM [Concomitant]
  20. CENTRUM SILVER [Concomitant]
  21. NEXIUM [Concomitant]

REACTIONS (2)
  - Depressed level of consciousness [Recovered/Resolved]
  - Pneumonia [Recovered/Resolved]
